FAERS Safety Report 8553545-7 (Version None)
Quarter: 2012Q3

REPORT INFORMATION
  Report Type: 
  Country: None (occurrence: None)
  Receive Date: 20120731
  Receipt Date: 20120726
  Transmission Date: 20120928
  Serious: Yes (Other)
  Sender: FDA-Public Use
  Company Number: US-PFIZER INC-2012182273

PATIENT
  Sex: Female
  Weight: 95.2 kg

DRUGS (4)
  1. PREVACID [Concomitant]
     Dosage: UNK
  2. NEURONTIN [Suspect]
     Indication: DIABETIC NEUROPATHY
     Dosage: 300 MG, UNK
     Route: 048
  3. NEURONTIN [Suspect]
     Dosage: 600 MG, UNK
     Route: 048
  4. WELLBUTRIN [Concomitant]
     Dosage: UNK

REACTIONS (3)
  - GLYCOSYLATED HAEMOGLOBIN INCREASED [None]
  - RENAL FAILURE [None]
  - VIRAL INFECTION [None]
